FAERS Safety Report 16651523 (Version 3)
Quarter: 2020Q3

REPORT INFORMATION
  Report Type: Other
  Country: AT (occurrence: AT)
  Receive Date: 20190731
  Receipt Date: 20191230
  Transmission Date: 20201104
  Serious: Yes (Death, Life-Threatening, Hospitalization, Other)
  Sender: FDA-Public Use
  Company Number: AT-EMD SERONO-E2B_90069552

PATIENT
  Age: 31 Year
  Sex: Male

DRUGS (18)
  1. STROMBA [Suspect]
     Active Substance: STANOZOLOL
     Dosage: 80 TABLETS
  2. WINSTROL [Suspect]
     Active Substance: STANOZOLOL
     Indication: INTENTIONAL PRODUCT MISUSE
     Dosage: 2 INJ
     Route: 065
  3. VALIUM [Suspect]
     Active Substance: DIAZEPAM
     Indication: INTENTIONAL PRODUCT MISUSE
     Route: 065
  4. MASTERON [Suspect]
     Active Substance: DROMOSTANOLONE PROPIONATE
     Indication: INTENTIONAL PRODUCT MISUSE
     Dosage: 2 INJ
     Route: 065
  5. ASPIRIN BAYER [Suspect]
     Active Substance: ASPIRIN
     Indication: INTENTIONAL PRODUCT MISUSE
     Route: 065
  6. METHANDIENONE [Suspect]
     Active Substance: METHANDROSTENOLONE
     Indication: INTENTIONAL PRODUCT MISUSE
  7. LASIX [Suspect]
     Active Substance: FUROSEMIDE
     Indication: INTENTIONAL PRODUCT MISUSE
     Route: 065
  8. TESTOVIRON                         /00103102/ [Suspect]
     Active Substance: TESTOSTERONE PROPIONATE
     Indication: INTENTIONAL PRODUCT MISUSE
     Dosage: 250 MG, UNK
     Route: 065
  9. HALOTESTIN [Suspect]
     Active Substance: FLUOXYMESTERONE
     Indication: INTENTIONAL PRODUCT MISUSE
     Dosage: 30 ? 40 TABLETS
     Route: 065
  10. STROMBA [Suspect]
     Active Substance: STANOZOLOL
     Indication: INTENTIONAL PRODUCT MISUSE
     Dosage: 2 INJECTIONS
  11. CAPTAGON [Suspect]
     Active Substance: FENETHYLLINE HYDROCHLORIDE
     Indication: INTENTIONAL PRODUCT MISUSE
     Route: 065
  12. EPHEDRINE. [Suspect]
     Active Substance: EPHEDRINE
     Indication: INTENTIONAL PRODUCT MISUSE
     Route: 065
  13. CLENBUTEROL [Suspect]
     Active Substance: CLENBUTEROL
     Indication: INTENTIONAL PRODUCT MISUSE
     Route: 065
  14. SOMATROPIN. [Suspect]
     Active Substance: SOMATROPIN
     Indication: INTENTIONAL PRODUCT MISUSE
     Dosage: 24 IU
     Route: 065
  15. INSULIN [Suspect]
     Active Substance: INSULIN NOS
     Indication: INTENTIONAL PRODUCT MISUSE
     Dosage: 20 IU, UNK
     Route: 065
  16. AN 1 [Concomitant]
     Indication: PRODUCT USED FOR UNKNOWN INDICATION
  17. PARABOLAN [Suspect]
     Active Substance: TRENBOLONE
     Indication: INTENTIONAL PRODUCT MISUSE
     Dosage: 2 INJECTIONS
     Route: 065
  18. ALDACTONE [Suspect]
     Active Substance: SPIRONOLACTONE
     Indication: INTENTIONAL PRODUCT MISUSE
     Route: 065

REACTIONS (6)
  - Intra-abdominal haemorrhage [Fatal]
  - Drug abuse [Fatal]
  - Multiple organ dysfunction syndrome [Fatal]
  - Intentional product misuse [Fatal]
  - Hepatic neoplasm [Fatal]
  - Poisoning [Fatal]
